FAERS Safety Report 7331031-X (Version None)
Quarter: 2011Q1

REPORT INFORMATION
  Report Type: 
  Country: None (occurrence: None)
  Receive Date: 20110228
  Receipt Date: 20110228
  Transmission Date: 20110831
  Serious: Yes (Disabling)
  Sender: FDA-Public Use
  Company Number: None

PATIENT
  Age: 65 Year
  Sex: Female
  Weight: 70.3075 kg

DRUGS (1)
  1. METHYLPREDNISOLONE [Suspect]
     Dosage: 1000 MG EA. DAY  JULY 23RD - 29

REACTIONS (3)
  - ACTIVITIES OF DAILY LIVING IMPAIRED [None]
  - DRUG HYPERSENSITIVITY [None]
  - BURNING SENSATION [None]
